FAERS Safety Report 18632488 (Version 1)
Quarter: 2020Q4

REPORT INFORMATION
  Report Type: Spontaneous
  Country: GB (occurrence: GB)
  Receive Date: 20201218
  Receipt Date: 20201218
  Transmission Date: 20210114
  Serious: Yes (Other)
  Sender: FDA-Public Use
  Company Number: GB-TEVA-2020-GB-1858906

PATIENT
  Age: 76 Year
  Sex: Female
  Weight: 87 kg

DRUGS (4)
  1. CLARITHROMYCIN. [Suspect]
     Active Substance: CLARITHROMYCIN
     Dosage: 500 MG
     Dates: start: 20201119
  2. DOUBLEBASE [Concomitant]
     Active Substance: ISOPROPYL MYRISTATE\PARAFFIN
     Dosage: USE AS NEEDED
     Dates: start: 20201119
  3. EVOREL [Concomitant]
     Dosage: APPLY, 2 DOSAGE FORMS
     Dates: start: 20200722
  4. MOMETASONE [Concomitant]
     Active Substance: MOMETASONE
     Dosage: SPRAYS, 2 DOSAGE FORMS
     Dates: start: 20200722

REACTIONS (2)
  - Swollen tongue [Recovered/Resolved]
  - Mouth ulceration [Recovered/Resolved]

NARRATIVE: CASE EVENT DATE: 20201119
